FAERS Safety Report 4310918-6 (Version None)
Quarter: 2004Q1

REPORT INFORMATION
  Report Type: 
  Country: None (occurrence: None)
  Receive Date: 20040303
  Receipt Date: 20040225
  Transmission Date: 20041129
  Serious: Yes (Death)
  Sender: FDA-Public Use
  Company Number: 04-02-0293

PATIENT
  Age: 43 Year
  Sex: Female

DRUGS (4)
  1. CLOZAPINE [Suspect]
     Indication: BIPOLAR DISORDER
     Dosage: 200-300MG QD ORAL
     Route: 048
     Dates: start: 20031001, end: 20040101
  2. CLOZAPINE [Suspect]
     Indication: SCHIZOAFFECTIVE DISORDER
     Dosage: 200-300MG QD ORAL
     Route: 048
     Dates: start: 20031001, end: 20040101
  3. ALCOHOL [Concomitant]
  4. KETAMIN [Concomitant]

REACTIONS (3)
  - ALCOHOL USE [None]
  - COMPLETED SUICIDE [None]
  - TREATMENT NONCOMPLIANCE [None]
